FAERS Safety Report 14921078 (Version 3)
Quarter: 2018Q2

REPORT INFORMATION
  Report Type: Spontaneous
  Country: FR (occurrence: FR)
  Receive Date: 20180521
  Receipt Date: 20180615
  Transmission Date: 20180711
  Serious: Yes (Death, Hospitalization, Other)
  Sender: FDA-Public Use
  Company Number: PHHY2018FR002798

PATIENT
  Age: 47 Year
  Sex: Female
  Weight: 69 kg

DRUGS (2)
  1. SOLU-MEDROL [Concomitant]
     Active Substance: METHYLPREDNISOLONE SODIUM SUCCINATE
     Indication: PRODUCT USED FOR UNKNOWN INDICATION
     Dosage: 40 MG, QD
     Route: 042
     Dates: start: 20180601
  2. REVOLADE [Suspect]
     Active Substance: ELTROMBOPAG
     Indication: IMMUNE THROMBOCYTOPENIC PURPURA
     Dosage: 75 MG, UNK
     Route: 048
     Dates: start: 20171201

REACTIONS (11)
  - Anxiety [Unknown]
  - Thrombophlebitis [Fatal]
  - Klebsiella infection [Unknown]
  - Transverse sinus thrombosis [Unknown]
  - Disturbance in attention [Unknown]
  - Bacteraemia [Unknown]
  - Agitation [Unknown]
  - Jugular vein thrombosis [Unknown]
  - Red blood cell count decreased [Unknown]
  - Haematoma [Unknown]
  - Ulcer [Unknown]

NARRATIVE: CASE EVENT DATE: 20180420
